FAERS Safety Report 8903166 (Version 1)
Quarter: 2012Q4

REPORT INFORMATION
  Report Type: 
  Country: GB (occurrence: GB)
  Receive Date: 20121112
  Receipt Date: 20121112
  Transmission Date: 20130627
  Serious: Yes (Hospitalization)
  Sender: FDA-Public Use
  Company Number: GB-MYLANLABS-2012S1022467

PATIENT
  Age: 36 Year
  Sex: Male

DRUGS (1)
  1. TOPIRAMATE [Suspect]
     Indication: MIGRAINE PROPHYLAXIS
     Route: 048

REACTIONS (10)
  - Anger [Unknown]
  - Balance disorder [Unknown]
  - Compulsions [Unknown]
  - Impaired self-care [Unknown]
  - Lethargy [Unknown]
  - Amnesia [Unknown]
  - Psychotic disorder [Recovering/Resolving]
  - Social problem [Unknown]
  - Speech disorder [Unknown]
  - Fatigue [Unknown]
